FAERS Safety Report 17039824 (Version 1)
Quarter: 2019Q4

REPORT INFORMATION
  Report Type: Other
  Country: GB (occurrence: GB)
  Receive Date: 20191116
  Receipt Date: 20191116
  Transmission Date: 20200122
  Serious: Yes (Life-Threatening, Hospitalization)
  Sender: FDA-Public Use
  Company Number: GB-EMCURE PHARMACEUTICALS LTD-2018-EPL-0503

PATIENT
  Age: 63 Year
  Sex: Male
  Weight: 83.3 kg

DRUGS (15)
  1. SULFAMETHOXAZOLE, TRIMETHOPRIM [Suspect]
     Active Substance: SULFAMETHOXAZOLE\TRIMETHOPRIM
     Indication: MANTLE CELL LYMPHOMA
     Dosage: 960 MILLIGRAM, IN A DAY ON MONDAY, WEDNESDAY AND FRIDAY
     Route: 048
     Dates: start: 20180911, end: 20180923
  2. ALLOPURINOL. [Suspect]
     Active Substance: ALLOPURINOL
     Indication: MANTLE CELL LYMPHOMA
     Dosage: 300 MILLIGRAM,DAILY
     Route: 048
     Dates: start: 20180911, end: 20180923
  3. SIMVASTATIN. [Concomitant]
     Active Substance: SIMVASTATIN
     Dosage: UNK
  4. MEROPENEM. [Concomitant]
     Active Substance: MEROPENEM
     Dosage: UNK
  5. CLENIL MODULITE [Concomitant]
     Active Substance: BECLOMETHASONE DIPROPIONATE
     Dosage: UNK
  6. LACTULOSE. [Concomitant]
     Active Substance: LACTULOSE
     Dosage: UNK
  7. INSULIN ASPART [Concomitant]
     Active Substance: INSULIN ASPART
     Dosage: UNK
  8. LISINOPRIL. [Concomitant]
     Active Substance: LISINOPRIL
     Dosage: UNK
  9. GENTAMICIN. [Concomitant]
     Active Substance: GENTAMICIN
     Indication: SEPSIS
     Dosage: UNK
     Dates: start: 20180919
  10. IBRUTINIB [Concomitant]
     Active Substance: IBRUTINIB
     Indication: MANTLE CELL LYMPHOMA
     Dosage: 560 MILLIGRAM, DAILY
     Route: 048
     Dates: start: 20180911, end: 20181129
  11. SALBUTAMOL [Concomitant]
     Active Substance: ALBUTEROL
     Dosage: UNK
  12. RITUXIMAB. [Concomitant]
     Active Substance: RITUXIMAB
     Dosage: UNK
     Dates: start: 20180911
  13. TAZOCIN [Concomitant]
     Active Substance: PIPERACILLIN SODIUM\TAZOBACTAM SODIUM
     Indication: SEPSIS
     Dosage: UNK
     Dates: start: 20180919
  14. VANCOMYCIN [Concomitant]
     Active Substance: VANCOMYCIN
     Dosage: UNK
  15. INSULIN [Concomitant]
     Active Substance: INSULIN NOS
     Indication: DIABETES MELLITUS
     Dosage: UNK

REACTIONS (8)
  - Hyperpyrexia [Unknown]
  - Tachycardia [Unknown]
  - Wheezing [Unknown]
  - Petechiae [Recovered/Resolved]
  - Lower respiratory tract infection [Unknown]
  - Hypotension [Unknown]
  - Fatigue [Unknown]
  - Tachypnoea [Unknown]

NARRATIVE: CASE EVENT DATE: 20180920
